FAERS Safety Report 15029010 (Version 2)
Quarter: 2018Q3

REPORT INFORMATION
  Report Type: Spontaneous
  Country: US (occurrence: US)
  Receive Date: 20180619
  Receipt Date: 20180809
  Transmission Date: 20181010
  Serious: Yes (Other)
  Sender: FDA-Public Use
  Company Number: US-BAYER-2018-111394

PATIENT
  Age: 32 Year
  Sex: Female
  Weight: 97.5 kg

DRUGS (5)
  1. PROVENTIL [Concomitant]
     Active Substance: ALBUTEROL
  2. MIRENA [Suspect]
     Active Substance: LEVONORGESTREL
     Dosage: 20 MCG/24HR, CONT
     Route: 015
     Dates: start: 20140303
  3. MIRENA [Suspect]
     Active Substance: LEVONORGESTREL
     Dosage: 20 MCG/24HR, CONT
     Route: 015
     Dates: start: 20080701
  4. PAXIL [Concomitant]
     Active Substance: PAROXETINE HYDROCHLORIDE
  5. CLARITIN [Concomitant]
     Active Substance: LORATADINE

REACTIONS (4)
  - Papilloedema [None]
  - Headache [None]
  - Visual impairment [None]
  - Idiopathic intracranial hypertension [None]
